FAERS Safety Report 24568717 (Version 1)
Quarter: 2024Q4

REPORT INFORMATION
  Report Type: Spontaneous
  Country: RS (occurrence: RS)
  Receive Date: 20241031
  Receipt Date: 20241031
  Transmission Date: 20250115
  Serious: Yes (Death)
  Sender: ROCHE
  Company Number: RS-ROCHE-10000121106

PATIENT
  Age: 52 Year
  Sex: Male

DRUGS (1)
  1. TECENTRIQ [Suspect]
     Active Substance: ATEZOLIZUMAB
     Indication: Adenocarcinoma
     Dosage: NO OF CYCLES ADMINISTERED-1
     Route: 065
     Dates: start: 20240715

REACTIONS (1)
  - Death [Fatal]
